FAERS Safety Report 9048671 (Version 1)
Quarter: 2013Q1

REPORT INFORMATION
  Report Type: Spontaneous
  Country: US (occurrence: None)
  Receive Date: 20130130
  Receipt Date: 20130130
  Transmission Date: 20140127
  Serious: Yes (Other)
  Sender: FDA-Public Use
  Company Number: None

PATIENT
  Age: 43 Year
  Sex: Female
  Weight: 63.5 kg

DRUGS (1)
  1. MEFLOQUINE [Suspect]
     Route: 048
     Dates: start: 20121203, end: 20130116

REACTIONS (13)
  - Anxiety [None]
  - Insomnia [None]
  - Paranoia [None]
  - Obsessive-compulsive disorder [None]
  - Delusion [None]
  - Mania [None]
  - Psychotic disorder [None]
  - Nausea [None]
  - Disorientation [None]
  - Confusional state [None]
  - Loss of consciousness [None]
  - Dyskinesia [None]
  - Blood pressure increased [None]
